FAERS Safety Report 11618396 (Version 2)
Quarter: 2015Q4

REPORT INFORMATION
  Report Type: Spontaneous
  Country: RO (occurrence: RO)
  Receive Date: 20151012
  Receipt Date: 20151117
  Transmission Date: 20160304
  Serious: Yes (Other)
  Sender: FDA-Public Use
  Company Number: RO-ROCHE-1642657

PATIENT
  Age: 63 Year
  Sex: Male

DRUGS (9)
  1. CARVEDILOL. [Concomitant]
     Active Substance: CARVEDILOL
     Route: 048
  2. ASPENTER [Concomitant]
     Active Substance: ASPIRIN
     Route: 048
  3. KETOSTERIL [Concomitant]
     Active Substance: AMINO ACIDS
     Route: 048
  4. FUROSEMID [Concomitant]
     Active Substance: FUROSEMIDE
     Route: 065
  5. FRAGMIN [Concomitant]
     Active Substance: DALTEPARIN SODIUM
     Indication: THROMBOSIS PROPHYLAXIS
     Route: 065
  6. MILURIT [Concomitant]
     Active Substance: ALLOPURINOL
     Indication: HYPERURICAEMIA
     Route: 048
  7. ACC [Concomitant]
     Active Substance: ACETYLCYSTEINE
     Route: 048
  8. CEFTRIAXONE. [Suspect]
     Active Substance: CEFTRIAXONE
     Indication: ENDOCARDITIS BACTERIAL
     Route: 065
  9. TAMSOL [Concomitant]
     Indication: PROSTATIC ADENOMA
     Route: 048

REACTIONS (2)
  - Drug ineffective [Unknown]
  - Septic embolus [Unknown]
